FAERS Safety Report 8926509 (Version 1)
Quarter: 2012Q4

REPORT INFORMATION
  Report Type: Report from Study
  Country: BR (occurrence: BR)
  Receive Date: 20121127
  Receipt Date: 20121127
  Transmission Date: 20130627
  Serious: Yes (Other)
  Sender: FDA-Public Use
  Company Number: BR-ROCHE-1155674

PATIENT
  Sex: Male
  Weight: 65 kg

DRUGS (3)
  1. PEG-INTERFERON ALFA 2A [Suspect]
     Indication: HEPATITIS C
     Route: 058
  2. FOLIC ACID [Concomitant]
     Indication: IRON DEFICIENCY
  3. PURAN T4 [Concomitant]
     Route: 048

REACTIONS (3)
  - Hepatitis C [Not Recovered/Not Resolved]
  - Headache [Recovered/Resolved]
  - Pyrexia [Recovered/Resolved]
